FAERS Safety Report 12099874 (Version 1)
Quarter: 2016Q1

REPORT INFORMATION
  Report Type: Spontaneous
  Country: US (occurrence: None)
  Receive Date: 20160219
  Receipt Date: 20160219
  Transmission Date: 20160526
  Serious: Yes (Other)
  Sender: FDA-Public Use
  Company Number: None

PATIENT
  Age: 22 Year
  Sex: Male
  Weight: 112.49 kg

DRUGS (1)
  1. SUBOXONE [Suspect]
     Active Substance: BUPRENORPHINE HYDROCHLORIDE\NALOXONE HYDROCHLORIDE
     Dosage: 1 FILM TID SUBLINGUAL
     Route: 060
     Dates: start: 20160116, end: 20160218

REACTIONS (2)
  - Nausea [None]
  - Anxiety [None]

NARRATIVE: CASE EVENT DATE: 20160218
